FAERS Safety Report 12911087 (Version 2)
Quarter: 2016Q4

REPORT INFORMATION
  Report Type: Report from Study
  Country: US (occurrence: US)
  Receive Date: 20161104
  Receipt Date: 20161130
  Transmission Date: 20170207
  Serious: No
  Sender: FDA-Public Use
  Company Number: US-PFIZER INC-2016510165

PATIENT
  Age: 58 Year
  Sex: Female

DRUGS (1)
  1. IBRANCE [Suspect]
     Active Substance: PALBOCICLIB
     Indication: BREAST CANCER
     Dosage: 125 MG, CYCLIC (DAILY; 3 WEEKS ON/ 1 WEEK OFF)
     Route: 048
     Dates: start: 20161029

REACTIONS (1)
  - Urticaria [Unknown]
